FAERS Safety Report 10125793 (Version 2)
Quarter: 2014Q2

REPORT INFORMATION
  Report Type: Report from Study
  Country: TR (occurrence: TR)
  Receive Date: 20140427
  Receipt Date: 20140601
  Transmission Date: 20141212
  Serious: No
  Sender: FDA-Public Use
  Company Number: TR-US-EMD SERONO, INC.-7283897

PATIENT
  Sex: Female
  Weight: 65 kg

DRUGS (3)
  1. REBIF [Suspect]
     Indication: MULTIPLE SCLEROSIS
     Dates: start: 201204
  2. TAMOL [Suspect]
     Indication: ANALGESIC THERAPY
  3. TAMOL [Suspect]
     Indication: PROPHYLAXIS

REACTIONS (2)
  - Cholelithiasis [Recovered/Resolved]
  - Injection site mass [Not Recovered/Not Resolved]
